FAERS Safety Report 17170335 (Version 2)
Quarter: 2020Q4

REPORT INFORMATION
  Report Type: Spontaneous
  Country: GB (occurrence: GB)
  Receive Date: 20191218
  Receipt Date: 20201208
  Transmission Date: 20210113
  Serious: Yes (Death, Hospitalization, Other)
  Sender: FDA-Public Use
  Company Number: GB-INTERCEPT-PM2019002233

PATIENT
  Age: 9 Decade
  Sex: Female

DRUGS (1)
  1. OCALIVA [Suspect]
     Active Substance: OBETICHOLIC ACID
     Indication: PRIMARY BILIARY CHOLANGITIS
     Dosage: 5 MG, QD
     Route: 065
     Dates: start: 201805, end: 201806

REACTIONS (2)
  - Transplantation complication [Fatal]
  - Liver transplant [Unknown]

NARRATIVE: CASE EVENT DATE: 201806
